FAERS Safety Report 10184806 (Version 3)
Quarter: 2014Q2

REPORT INFORMATION
  Report Type: Spontaneous
  Country: US (occurrence: US)
  Receive Date: 20140521
  Receipt Date: 20140603
  Transmission Date: 20141212
  Serious: Yes (Death, Other)
  Sender: FDA-Public Use
  Company Number: US-AMGEN-USASP2014033479

PATIENT
  Age: 92 Year
  Sex: Female
  Weight: 64.4 kg

DRUGS (1)
  1. PROLIA [Suspect]
     Indication: PRODUCT USED FOR UNKNOWN INDICATION
     Dosage: 60 MG/ML, UNK
     Route: 058

REACTIONS (5)
  - Intestinal ischaemia [Fatal]
  - Cardiac failure congestive [Fatal]
  - Atrial fibrillation [Fatal]
  - Angiopathy [Fatal]
  - Haemorrhagic diathesis [Unknown]
